FAERS Safety Report 14069347 (Version 1)
Quarter: 2017Q4

REPORT INFORMATION
  Report Type: Spontaneous
  Country: SK (occurrence: SK)
  Receive Date: 20171010
  Receipt Date: 20171010
  Transmission Date: 20180321
  Serious: Yes (Death)
  Sender: FDA-Public Use
  Company Number: SK-PFIZER INC-19620

PATIENT
  Sex: Male

DRUGS (7)
  1. CISPLATIN. [Suspect]
     Active Substance: CISPLATIN
     Indication: TESTICULAR GERM CELL CANCER
     Dosage: 20 MG/M2, DAY 1 THROUGH 5, FREQ: PER_CYCLE
     Route: 065
  2. RANITIDINE. [Concomitant]
     Active Substance: RANITIDINE
     Indication: PREMEDICATION
     Dosage: UNK
     Route: 065
  3. BLEOMYCIN [Suspect]
     Active Substance: BLEOMYCIN SULFATE
     Indication: TESTICULAR GERM CELL CANCER
     Dosage: 30 MG/M2, DAYS 2,8 AND15, FREQ: PER_CYCLE
     Route: 065
  4. DEXAMETHASON [Concomitant]
     Active Substance: DEXAMETHASONE
     Indication: PREMEDICATION
     Dosage: UNK
     Route: 065
  5. BISULEPIN HYDROCHLORIDE [Concomitant]
     Active Substance: BISULEPIN HYDROCHLORIDE
     Indication: PREMEDICATION
     Dosage: UNK
     Route: 065
  6. PACLITAXEL. [Suspect]
     Active Substance: PACLITAXEL
     Indication: TESTICULAR GERM CELL CANCER
     Dosage: 175 MG/M2, 3-HOUR INFUSION ON DAY 1,FREQ:  PER_CYCLE
     Route: 050
  7. ETOPOSIDE. [Suspect]
     Active Substance: ETOPOSIDE
     Indication: TESTICULAR GERM CELL CANCER
     Dosage: 100 MG/M2, DAYS 1 THROUGH 5, FREQ: PER_CYCLE
     Route: 065

REACTIONS (3)
  - Septic shock [Fatal]
  - Respiratory failure [Fatal]
  - Acute respiratory distress syndrome [Fatal]
